FAERS Safety Report 7268534-2 (Version None)
Quarter: 2011Q1

REPORT INFORMATION
  Report Type: 
  Country: None (occurrence: None)
  Receive Date: 20110201
  Receipt Date: 20101221
  Transmission Date: 20110831
  Serious: Yes (Hospitalization)
  Sender: FDA-Public Use
  Company Number: US-ACTELION-A-US2010-44418

PATIENT

DRUGS (3)
  1. CALCIUM CHANNEL BLOCKERS [Concomitant]
  2. COUMADIN [Concomitant]
  3. TRACLEER [Suspect]
     Indication: PULMONARY ARTERIAL HYPERTENSION
     Dosage: UNK
     Route: 048
     Dates: start: 20100831

REACTIONS (1)
  - COMA [None]
